FAERS Safety Report 5033971-3 (Version None)
Quarter: 2006Q2

REPORT INFORMATION
  Report Type: 
  Country: None (occurrence: None)
  Receive Date: 20060511
  Receipt Date: 20050527
  Transmission Date: 20061013
  Serious: Yes (Other)
  Sender: FDA-Public Use
  Company Number: US_0506118169

PATIENT
  Age: 62 Year
  Sex: Female

DRUGS (3)
  1. KEFLEX [Suspect]
     Dates: start: 20050310
  2. LAMICTAL [Concomitant]
  3. SULPHACETAMIDE (SULPHACETAMIDE) [Concomitant]

REACTIONS (3)
  - BLOOD CREATININE INCREASED [None]
  - DYSPNOEA [None]
  - STEVENS-JOHNSON SYNDROME [None]
